FAERS Safety Report 7943804-0 (Version None)
Quarter: 2011Q4

REPORT INFORMATION
  Report Type: 
  Country: None (occurrence: None)
  Receive Date: 20111128
  Receipt Date: 20111122
  Transmission Date: 20120403
  Serious: Yes (Life-Threatening, Other)
  Sender: FDA-Public Use
  Company Number: JP-ROCHE-1001444

PATIENT
  Sex: Female
  Weight: 44 kg

DRUGS (5)
  1. ACETAMINOPHEN [Concomitant]
     Dosage: DOSAGE IS UNCERTAIN.
     Route: 065
     Dates: start: 20110212, end: 20110216
  2. TAMIFLU [Suspect]
     Dosage: DOSAGE IS UNCERTAIN.
     Route: 048
     Dates: start: 20110213, end: 20110216
  3. TAMIFLU [Suspect]
     Indication: INFLUENZA
     Dosage: DOSAGE IS UNCERTAIN.
     Route: 048
     Dates: start: 20110212, end: 20110212
  4. TOWATHIEM [Concomitant]
     Dosage: DOSAGE IS UNCERTAIN.
     Route: 048
     Dates: start: 20110212, end: 20110216
  5. MAIBASTAN [Concomitant]
     Indication: HYPERLIPIDAEMIA
     Dosage: DOSAGE IS UNCERTAIN.
     Route: 048
     Dates: start: 20110203, end: 20110222

REACTIONS (2)
  - STEVENS-JOHNSON SYNDROME [None]
  - LIVER DISORDER [None]
